FAERS Safety Report 8583788-8 (Version None)
Quarter: 2012Q3

REPORT INFORMATION
  Report Type: 
  Country: None (occurrence: None)
  Receive Date: 20120810
  Receipt Date: 20120730
  Transmission Date: 20120928
  Serious: Yes (Hospitalization, Disabling)
  Sender: FDA-Public Use
  Company Number: US-009507513-1207USA013122

PATIENT

DRUGS (4)
  1. TEMODAR [Suspect]
     Indication: BRAIN NEOPLASM
  2. ATORVASTATIN [Concomitant]
  3. KEPPRA [Concomitant]
  4. LOPRESSOR [Concomitant]

REACTIONS (2)
  - MENTAL STATUS CHANGES [None]
  - NEPHROGENIC DIABETES INSIPIDUS [None]
